FAERS Safety Report 5738701-5 (Version None)
Quarter: 2008Q2

REPORT INFORMATION
  Report Type: 
  Country: None (occurrence: None)
  Receive Date: 20080515
  Receipt Date: 20080512
  Transmission Date: 20081010
  Serious: Yes (Death, Hospitalization, Other)
  Sender: FDA-Public Use
  Company Number: PHBS2007BR13511

PATIENT
  Age: 70 Year
  Sex: Female
  Weight: 70 kg

DRUGS (2)
  1. FORASEQ [Suspect]
     Dosage: UNK, ONCE/SINGLE
  2. MESTINON [Concomitant]
     Indication: MUSCULAR WEAKNESS
     Dosage: 4 TAB/DAY
     Route: 048

REACTIONS (11)
  - CONDITION AGGRAVATED [None]
  - CYANOSIS [None]
  - DEATH [None]
  - DYSPNOEA [None]
  - MUSCULAR WEAKNESS [None]
  - MYASTHENIA GRAVIS [None]
  - OXYGEN SUPPLEMENTATION [None]
  - PNEUMONIA [None]
  - PULMONARY FUNCTION TEST DECREASED [None]
  - TRACHEOSTOMY [None]
  - WEIGHT DECREASED [None]
